FAERS Safety Report 10232548 (Version 2)
Quarter: 2014Q2

REPORT INFORMATION
  Report Type: Spontaneous
  Country: US (occurrence: US)
  Receive Date: 20140612
  Receipt Date: 20140612
  Transmission Date: 20141212
  Serious: No
  Sender: FDA-Public Use
  Company Number: US-TEVA-456513USA

PATIENT
  Sex: Female

DRUGS (1)
  1. ESCITALOPRAM [Suspect]
     Dosage: 10 MILLIGRAM DAILY;
     Dates: start: 201311

REACTIONS (7)
  - Musculoskeletal stiffness [Unknown]
  - Hyperhidrosis [Unknown]
  - Palpitations [Unknown]
  - Gait disturbance [Unknown]
  - Confusional state [Unknown]
  - Asthenia [Unknown]
  - Drug hypersensitivity [Unknown]
